FAERS Safety Report 23293979 (Version 1)
Quarter: 2023Q4

REPORT INFORMATION
  Report Type: Spontaneous
  Country: US (occurrence: US)
  Receive Date: 20231213
  Receipt Date: 20231213
  Transmission Date: 20240110
  Serious: No
  Sender: FDA-Public Use
  Company Number: US-BAYER-2023A177008

PATIENT
  Age: 35 Year
  Sex: Male

DRUGS (1)
  1. JIVI [Suspect]
     Active Substance: DAMOCTOCOG ALFA PEGOL
     Dosage: INFUSE 2600 UNITS (+/-10%) EVERY WEDNESDAY

REACTIONS (1)
  - Joint injury [None]

NARRATIVE: CASE EVENT DATE: 20231125
